FAERS Safety Report 16410216 (Version 1)
Quarter: 2019Q2

REPORT INFORMATION
  Report Type: Spontaneous
  Country: BR (occurrence: BR)
  Receive Date: 20190610
  Receipt Date: 20190610
  Transmission Date: 20190711
  Serious: Yes (Other)
  Sender: FDA-Public Use
  Company Number: BR-SA-2019SA148203

PATIENT
  Age: 73 Year
  Sex: Male
  Weight: 88 kg

DRUGS (5)
  1. LIPITOR [Concomitant]
     Active Substance: ATORVASTATIN CALCIUM
     Indication: BLOOD CHOLESTEROL
     Dosage: UNK UNK, QD
     Route: 048
     Dates: start: 2009
  2. BACTRIM [Concomitant]
     Active Substance: SULFAMETHOXAZOLE\TRIMETHOPRIM
     Indication: TRANSPLANT
     Dosage: UNK UNK, BIW
     Route: 048
     Dates: start: 201901
  3. PRIMID [Concomitant]
     Indication: ESSENTIAL TREMOR
     Dosage: UNK UNK, QD
     Route: 048
     Dates: start: 2016
  4. VALTREX [Concomitant]
     Active Substance: VALACYCLOVIR HYDROCHLORIDE
     Dosage: UNK UNK, BID
     Route: 048
     Dates: start: 201901
  5. DORFLEX ICY HOT [Suspect]
     Active Substance: MENTHOL
     Indication: MYALGIA
     Dosage: UNK UNK, BID
     Route: 061
     Dates: start: 20190524, end: 20190524

REACTIONS (6)
  - Application site hypersensitivity [Recovering/Resolving]
  - Application site swelling [Recovering/Resolving]
  - Erythema [Recovering/Resolving]
  - Skin warm [Recovering/Resolving]
  - Blood creatine phosphokinase increased [Unknown]
  - Peripheral swelling [Not Recovered/Not Resolved]

NARRATIVE: CASE EVENT DATE: 20190524
